FAERS Safety Report 4341573-7 (Version None)
Quarter: 2004Q2

REPORT INFORMATION
  Report Type: 
  Country: None (occurrence: None)
  Receive Date: 20040415
  Receipt Date: 20040401
  Transmission Date: 20050107
  Serious: Yes (Hospitalization)
  Sender: FDA-Public Use
  Company Number: 2004PK00620

PATIENT
  Age: 59 Year
  Sex: Male
  Weight: 61.8 kg

DRUGS (7)
  1. IRESSA [Suspect]
     Indication: CARCINOMA
     Dosage: 500 MG DAILY PO
     Route: 048
     Dates: start: 20040213
  2. DURAGESIC [Concomitant]
  3. SEVREDOL [Concomitant]
  4. NOVAMIN [Concomitant]
  5. VIOXX [Concomitant]
  6. OMEPRAZOLE [Concomitant]
  7. METOCLOPRAMIDE HYDROCHLORIDE [Concomitant]

REACTIONS (1)
  - LOSS OF CONSCIOUSNESS [None]
